FAERS Safety Report 8184803-6 (Version None)
Quarter: 2012Q1

REPORT INFORMATION
  Report Type: 
  Country: None (occurrence: None)
  Receive Date: 20120305
  Receipt Date: 20120223
  Transmission Date: 20120608
  Serious: Yes (Hospitalization)
  Sender: FDA-Public Use
  Company Number: US-BAYER-2011-085617

PATIENT
  Age: 22 Year
  Sex: Female
  Weight: 92.971 kg

DRUGS (9)
  1. YAZ [Suspect]
  2. DROSPIRENONE AND ETHINYL ESTRADIOL [Suspect]
     Indication: PREMENSTRUAL SYNDROME
     Dosage: UNK
     Dates: start: 20100101
  3. VICODIN [Concomitant]
     Dosage: UNK
     Route: 048
     Dates: start: 20071215
  4. YAZ [Suspect]
     Indication: PREMENSTRUAL SYNDROME
     Dosage: UNK
     Dates: start: 20060101
  5. YASMIN [Suspect]
     Indication: PREMENSTRUAL SYNDROME
     Dosage: UNK
     Dates: start: 20070101
  6. YASMIN [Suspect]
  7. DROSPIRENONE AND ETHINYL ESTRADIOL [Suspect]
  8. HEADACHE MEDICINE [Concomitant]
     Dosage: UNK
     Dates: start: 20060101
  9. KEFLEX [Concomitant]
     Dosage: 500 MG, UNK
     Dates: start: 20071216

REACTIONS (7)
  - GALLBLADDER DISORDER [None]
  - CHOLECYSTITIS CHRONIC [None]
  - PAIN [None]
  - ANXIETY [None]
  - PSYCHOLOGICAL TRAUMA [None]
  - INJURY [None]
  - EMOTIONAL DISTRESS [None]
